FAERS Safety Report 24209987 (Version 1)
Quarter: 2024Q3

REPORT INFORMATION
  Report Type: Spontaneous
  Country: GB (occurrence: GB)
  Receive Date: 20240814
  Receipt Date: 20240814
  Transmission Date: 20241016
  Serious: Yes (Hospitalization, Other)
  Sender: DR REDDYS
  Company Number: GB-GERMAN-LIT/GBR/24/0011830

PATIENT
  Age: 66 Year
  Sex: Female

DRUGS (3)
  1. AZACITIDINE [Suspect]
     Active Substance: AZACITIDINE
     Indication: Myelofibrosis
  2. RUXOLITINIB [Concomitant]
     Active Substance: RUXOLITINIB
     Indication: Myelofibrosis
  3. PREDNISOLONE [Concomitant]
     Active Substance: PREDNISOLONE
     Indication: Fungal infection
     Dosage: 60 MG OF PREDNISOLONE (A DOSE OF JUST UNDER 1 MG PER KG)

REACTIONS (7)
  - Neutrophilic dermatosis [Recovered/Resolved]
  - Respiratory rate increased [Recovered/Resolved]
  - Oxygen saturation decreased [Recovered/Resolved]
  - Hypotension [Recovered/Resolved]
  - Tachycardia [Recovered/Resolved]
  - Delirium [Recovered/Resolved]
  - Product use in unapproved indication [Unknown]
